FAERS Safety Report 21349595 (Version 1)
Quarter: 2022Q3

REPORT INFORMATION
  Report Type: Report from Study
  Country: US (occurrence: US)
  Receive Date: 20220919
  Receipt Date: 20220919
  Transmission Date: 20221027
  Serious: No
  Sender: FDA-Public Use
  Company Number: US-BIOVITRUM-2022US10759

PATIENT
  Sex: Female

DRUGS (1)
  1. KINERET [Suspect]
     Active Substance: ANAKINRA
     Indication: Rheumatoid arthritis
     Dates: start: 20190417, end: 20220615

REACTIONS (4)
  - Urinary tract infection [Unknown]
  - Sinusitis [Unknown]
  - Fatigue [Unknown]
  - Dysstasia [Unknown]
